FAERS Safety Report 6686634-2 (Version None)
Quarter: 2010Q2

REPORT INFORMATION
  Report Type: 
  Country: None (occurrence: None)
  Receive Date: 20100415
  Receipt Date: 20090901
  Transmission Date: 20101027
  Serious: Yes (Other)
  Sender: FDA-Public Use
  Company Number: LIO2009011

PATIENT
  Sex: Female

DRUGS (7)
  1. LIOTHYRONINE SODIUM TAB [Suspect]
     Indication: HYPERTHYROIDISM
     Dosage: 37.5 MCG, QD, ORAL
     Route: 048
     Dates: start: 20090701, end: 20090831
  2. SULINDAC [Concomitant]
  3. LOSARTEN [Concomitant]
  4. PANCRELIPASE [Concomitant]
  5. PROBIOTICS [Concomitant]
  6. GLUCOSAMINE/CHRONDROITIN [Concomitant]
  7. MULTI-VITAMINS [Concomitant]

REACTIONS (6)
  - BLINDNESS UNILATERAL [None]
  - DRY EYE [None]
  - DRY MOUTH [None]
  - EYE PRURITUS [None]
  - PRODUCT SUBSTITUTION ISSUE [None]
  - VISION BLURRED [None]
